FAERS Safety Report 6908962-5 (Version None)
Quarter: 2010Q3

REPORT INFORMATION
  Report Type: 
  Country: None (occurrence: None)
  Receive Date: 20100805
  Receipt Date: 20100723
  Transmission Date: 20110219
  Serious: Yes (Hospitalization)
  Sender: FDA-Public Use
  Company Number: US-BAYER-201012830NA

PATIENT
  Age: 36 Year
  Sex: Female
  Weight: 68 kg

DRUGS (3)
  1. YASMIN [Suspect]
     Indication: ORAL CONTRACEPTION
     Route: 048
     Dates: start: 20071101, end: 20080125
  2. PREDNISONE [Concomitant]
     Indication: NECK PAIN
     Dates: start: 20080116, end: 20080120
  3. NAPROXEN [Concomitant]
     Indication: NECK PAIN
     Dates: start: 20080104, end: 20080128

REACTIONS (4)
  - BACK PAIN [None]
  - MYALGIA [None]
  - PULMONARY EMBOLISM [None]
  - PULMONARY THROMBOSIS [None]
